FAERS Safety Report 17055133 (Version 1)
Quarter: 2019Q4

REPORT INFORMATION
  Report Type: Spontaneous
  Country: SE (occurrence: SE)
  Receive Date: 20191120
  Receipt Date: 20191120
  Transmission Date: 20200122
  Serious: Yes (Other)
  Sender: FDA-Public Use
  Company Number: SE-MYLANLABS-2019M1112204

PATIENT
  Age: 82 Year
  Sex: Female
  Weight: 69 kg

DRUGS (1)
  1. ANTI 5 % KR?M (ACICLOVIR) [Suspect]
     Active Substance: ACYCLOVIR
     Indication: MOUTH ULCERATION
     Dosage: VAR 4:E TIMME - 5 GGR /DYGN
     Dates: start: 20190826, end: 20190829

REACTIONS (2)
  - Haemorrhage [Unknown]
  - Blister [Unknown]

NARRATIVE: CASE EVENT DATE: 20190828
